FAERS Safety Report 9114640 (Version 1)
Quarter: 2013Q1

REPORT INFORMATION
  Report Type: Spontaneous
  Country: US (occurrence: None)
  Receive Date: 20130220
  Receipt Date: 20130220
  Transmission Date: 20140127
  Serious: Yes (Other)
  Sender: FDA-Public Use
  Company Number: None

PATIENT
  Age: 60 Year
  Sex: Male

DRUGS (1)
  1. INTRON A [Suspect]
     Dosage: 10 MILLION UNITS UNDER THE SKIN,?MON, WEDNES, FRI
     Dates: start: 20121001

REACTIONS (1)
  - Pancreatitis acute [None]
